FAERS Safety Report 10214125 (Version 1)
Quarter: 2014Q2

REPORT INFORMATION
  Report Type: Spontaneous
  Country: CA (occurrence: None)
  Receive Date: 20140530
  Receipt Date: 20140530
  Transmission Date: 20141212
  Serious: Yes (Hospitalization)
  Sender: FDA-Public Use
  Company Number: 2357487

PATIENT
  Age: 65 Year
  Sex: Female

DRUGS (4)
  1. METRONIDAZOLE [Suspect]
     Indication: PREOPERATIVE CARE
  2. METRONIDAZOLE [Suspect]
     Indication: ANTIBIOTIC PROPHYLAXIS
  3. CEFAZOLIN [Suspect]
     Indication: PREOPERATIVE CARE
  4. CEFAZOLIN [Suspect]
     Indication: ANTIBIOTIC PROPHYLAXIS

REACTIONS (5)
  - Dysbacteriosis [None]
  - Spinal haematoma [None]
  - Paraplegia [None]
  - Vitamin K deficiency [None]
  - Coagulopathy [None]
